FAERS Safety Report 22272353 (Version 2)
Quarter: 2023Q2

REPORT INFORMATION
  Report Type: Spontaneous
  Country: GB (occurrence: GB)
  Receive Date: 20230502
  Receipt Date: 20230504
  Transmission Date: 20230722
  Serious: Yes (Death, Life-Threatening, Other)
  Sender: FDA-Public Use
  Company Number: GB-MHRA-MED-202304251421458240-CZJSM

PATIENT
  Age: 69 Year
  Sex: Male
  Weight: 76 kg

DRUGS (2)
  1. NIVOLUMAB [Suspect]
     Active Substance: NIVOLUMAB
     Indication: Metastatic renal cell carcinoma
     Dates: start: 20230403
  2. IPILIMUMAB [Suspect]
     Active Substance: IPILIMUMAB
     Indication: Metastatic renal cell carcinoma
     Dates: start: 20230403

REACTIONS (7)
  - Myasthenic syndrome [Fatal]
  - Myocarditis [Fatal]
  - Vision blurred [Unknown]
  - Dysphagia [Unknown]
  - Muscular weakness [Unknown]
  - Respiratory failure [Unknown]
  - Dyspnoea [Unknown]
